FAERS Safety Report 24305585 (Version 1)
Quarter: 2024Q3

REPORT INFORMATION
  Report Type: Spontaneous
  Country: BG (occurrence: BG)
  Receive Date: 20240911
  Receipt Date: 20240911
  Transmission Date: 20241016
  Serious: Yes (Hospitalization, Other)
  Sender: SANOFI AVENTIS
  Company Number: BG-SA-2024SA258273

PATIENT
  Age: 88 Year
  Sex: Female

DRUGS (6)
  1. CLOPIDOGREL BISULFATE [Suspect]
     Active Substance: CLOPIDOGREL BISULFATE
     Indication: Ischaemic stroke
     Dosage: 75 MG, QD
  2. BISOPROLOL FUMARATE [Suspect]
     Active Substance: BISOPROLOL FUMARATE
     Indication: Hypertension
     Dosage: 5 MG, BID
  3. BISOPROLOL FUMARATE [Suspect]
     Active Substance: BISOPROLOL FUMARATE
     Indication: Myocardial ischaemia
  4. LISINOPRIL [Suspect]
     Active Substance: LISINOPRIL
     Indication: Hypertension
     Dosage: 10 MG, BID
  5. AMLODIPINE [Suspect]
     Active Substance: AMLODIPINE BESYLATE
     Indication: Hypertension
     Dosage: 5 MG, BID
  6. NICERGOLINE [Suspect]
     Active Substance: NICERGOLINE
     Indication: Ischaemic stroke
     Dosage: 10 MG, TID

REACTIONS (8)
  - Basal cell carcinoma [Unknown]
  - Skin lesion [Unknown]
  - Scab [Unknown]
  - Telangiectasia [Unknown]
  - Skin wound [Unknown]
  - Skin ulcer haemorrhage [Unknown]
  - Tumour inflammation [Unknown]
  - Malignant melanoma of eyelid [Unknown]
